FAERS Safety Report 9038813 (Version 1)
Quarter: 2013Q1

REPORT INFORMATION
  Report Type: Spontaneous
  Country: US (occurrence: None)
  Receive Date: 20130123
  Receipt Date: 20130123
  Transmission Date: 20140127
  Serious: Yes (Other)
  Sender: FDA-Public Use
  Company Number: None

PATIENT
  Age: 80 None
  Sex: Female
  Weight: 86.18 kg

DRUGS (1)
  1. CIPROFLOXACIN HCL 250 MG [Suspect]
     Indication: URINARY TRACT INFECTION
     Dates: start: 20121229, end: 20130105

REACTIONS (7)
  - Urinary incontinence [None]
  - Fatigue [None]
  - Contusion [None]
  - Joint swelling [None]
  - Arthralgia [None]
  - Feeling abnormal [None]
  - Gait disturbance [None]
